FAERS Safety Report 12939586 (Version 2)
Quarter: 2017Q1

REPORT INFORMATION
  Report Type: Spontaneous
  Country: US (occurrence: US)
  Receive Date: 20161115
  Receipt Date: 20170103
  Transmission Date: 20170428
  Serious: No
  Sender: FDA-Public Use
  Company Number: US-PFIZER INC-2016528369

PATIENT

DRUGS (2)
  1. TRIAZOLAM. [Suspect]
     Active Substance: TRIAZOLAM
     Dosage: 0.25 MG, UNK
  2. TRIAZOLAM. [Suspect]
     Active Substance: TRIAZOLAM
     Indication: SEDATIVE THERAPY

REACTIONS (1)
  - Drug ineffective [Unknown]
